FAERS Safety Report 13754177 (Version 1)
Quarter: 2017Q3

REPORT INFORMATION
  Report Type: Spontaneous
  Country: US (occurrence: US)
  Receive Date: 20170714
  Receipt Date: 20170714
  Transmission Date: 20171127
  Serious: Yes (Other)
  Sender: FDA-Public Use
  Company Number: US-LPDUSPRD-20170957

PATIENT
  Sex: Female

DRUGS (1)
  1. INJECTAFER [Suspect]
     Active Substance: FERRIC CARBOXYMALTOSE
     Dosage: 750 MG IV
     Route: 042

REACTIONS (3)
  - Vomiting [Unknown]
  - Throat tightness [Unknown]
  - Pharyngeal paraesthesia [Unknown]

NARRATIVE: CASE EVENT DATE: 20170703
